FAERS Safety Report 16872207 (Version 2)
Quarter: 2019Q4

REPORT INFORMATION
  Report Type: Spontaneous
  Country: US (occurrence: US)
  Receive Date: 20191001
  Receipt Date: 20191014
  Transmission Date: 20200122
  Serious: Yes (Death, Life-Threatening, Hospitalization, Other)
  Sender: FDA-Public Use
  Company Number: US-UNITED THERAPEUTICS-UNT-2019-016361

PATIENT
  Sex: Female
  Weight: 115.65 kg

DRUGS (2)
  1. AMBRISENTAN [Concomitant]
     Active Substance: AMBRISENTAN
     Indication: PRODUCT USED FOR UNKNOWN INDICATION
     Dosage: UNK
     Route: 065
  2. REMODULIN [Suspect]
     Active Substance: TREPROSTINIL
     Indication: PULMONARY ARTERIAL HYPERTENSION
     Dosage: 0.0802 ?G/KG, CONTINUING
     Route: 058
     Dates: start: 20190219

REACTIONS (4)
  - Sepsis [Fatal]
  - Intestinal perforation [Fatal]
  - Cardiac arrest [Unknown]
  - Abdominal infection [Unknown]

NARRATIVE: CASE EVENT DATE: 2019
